FAERS Safety Report 8792717 (Version 4)
Quarter: 2013Q3

REPORT INFORMATION
  Report Type: Spontaneous
  Country: FR (occurrence: FR)
  Receive Date: 20120918
  Receipt Date: 20130906
  Transmission Date: 20140515
  Serious: Yes (Hospitalization)
  Sender: FDA-Public Use
  Company Number: FR-SANOFI-AVENTIS-2012SA067213

PATIENT
  Age: 84 Year
  Sex: Female

DRUGS (7)
  1. MONO-TILDIEM [Suspect]
     Indication: HYPERTENSION
     Dosage: DOSE:1 UNIT(S)
     Route: 048
     Dates: end: 20120830
  2. LASILIX [Suspect]
     Indication: HYPERTENSION
     Route: 048
     Dates: end: 20120827
  3. XANAX [Suspect]
     Indication: PRODUCT USED FOR UNKNOWN INDICATION
     Dosage: STRENGTH: 0.25MG
     Route: 048
  4. NORSET [Suspect]
     Indication: PRODUCT USED FOR UNKNOWN INDICATION
     Route: 048
     Dates: end: 20120830
  5. TAHOR [Suspect]
     Indication: HYPERCHOLESTEROLAEMIA
     Dosage: STRENGTH: 40MG
     Route: 048
     Dates: end: 20120830
  6. VALSARTAN/HYDROCHLOROTHIAZIDE [Suspect]
     Indication: HYPERTENSION
     Route: 048
     Dates: end: 20120830
  7. HYPERIUM [Suspect]
     Indication: HYPERTENSION
     Dosage: DOSE:1 UNIT(S)
     Route: 048
     Dates: end: 20120830

REACTIONS (3)
  - Hepatocellular injury [Recovered/Resolved]
  - Cholestasis [Recovered/Resolved]
  - Renal failure acute [Recovered/Resolved]
